FAERS Safety Report 5815803-6 (Version None)
Quarter: 2008Q3

REPORT INFORMATION
  Report Type: 
  Country: None (occurrence: None)
  Receive Date: 20080721
  Receipt Date: 20080710
  Transmission Date: 20090109
  Serious: Yes (Other)
  Sender: FDA-Public Use
  Company Number: US-JNJFOC-20080201701

PATIENT
  Age: 70 Year
  Sex: Female
  Weight: 58.97 kg

DRUGS (8)
  1. TYLENOL (CAPLET) [Suspect]
     Route: 048
  2. TYLENOL (CAPLET) [Suspect]
     Indication: ARTHRITIS
     Route: 048
  3. TYLENOL SINUS CONGESTION + PAIN DAYTIME COOL BURST [Suspect]
     Indication: SINUS CONGESTION
     Route: 048
  4. EXTRA STRENGTH TYLENOL [Suspect]
     Route: 048
  5. EXTRA STRENGTH TYLENOL [Suspect]
     Indication: EXOSTOSIS
     Route: 048
  6. EVISTA [Concomitant]
  7. SYNTHROID [Concomitant]
     Indication: HYPERTHYROIDISM
  8. CALCIUM AND VITAMIN D [Concomitant]
     Indication: NUTRITIONAL SUPPORT

REACTIONS (3)
  - DRUG INEFFECTIVE [None]
  - HEPATIC ENZYME INCREASED [None]
  - HEPATOMEGALY [None]
